FAERS Safety Report 11335149 (Version 1)
Quarter: 2015Q3

REPORT INFORMATION
  Report Type: Spontaneous
  Country: IT (occurrence: IT)
  Receive Date: 20150804
  Receipt Date: 20150804
  Transmission Date: 20151125
  Serious: Yes (Hospitalization)
  Sender: FDA-Public Use
  Company Number: IT-ACTAVIS-2015-15993

PATIENT
  Age: 18 Year
  Sex: Female

DRUGS (2)
  1. PANTOPRAZOLE [Suspect]
     Active Substance: PANTOPRAZOLE SODIUM
     Indication: INTENTIONAL SELF-INJURY
     Dosage: 1360 MG, TOTAL
     Route: 048
     Dates: start: 20150619, end: 20150619
  2. SIRDALUD [Suspect]
     Active Substance: TIZANIDINE
     Indication: INTENTIONAL SELF-INJURY
     Dosage: 80 MG, TOTAL
     Route: 048
     Dates: start: 20150619, end: 20150619

REACTIONS (3)
  - Drug abuse [Recovered/Resolved]
  - Intentional self-injury [Recovered/Resolved]
  - Sopor [Recovered/Resolved]

NARRATIVE: CASE EVENT DATE: 20150619
